FAERS Safety Report 21148853 (Version 1)
Quarter: 2022Q3

REPORT INFORMATION
  Report Type: Spontaneous
  Country: ES (occurrence: ES)
  Receive Date: 20220729
  Receipt Date: 20220729
  Transmission Date: 20221027
  Serious: Yes (Life-Threatening, Other)
  Sender: FDA-Public Use
  Company Number: None

PATIENT
  Age: 77 Year
  Sex: Male

DRUGS (16)
  1. OLMESARTAN MEDOXOMIL [Interacting]
     Active Substance: OLMESARTAN MEDOXOMIL
     Indication: Essential hypertension
     Dosage: UNK
     Route: 048
     Dates: start: 20220611, end: 2022
  2. ALDACTONE [Interacting]
     Active Substance: SPIRONOLACTONE
     Indication: Atrial fibrillation
     Dosage: UNK
     Route: 048
     Dates: start: 20220611, end: 2022
  3. DEXKETOPROFEN TROMETAMOL [Concomitant]
     Active Substance: DEXKETOPROFEN TROMETAMOL
     Indication: Spinal osteoarthritis
     Dosage: UNK
     Route: 048
     Dates: start: 20220304
  4. TESTEX PROLONGATUM [Concomitant]
     Indication: Organic erectile dysfunction
     Dosage: 250MG/2ML, ONCE EVERY 3 WK
     Route: 030
     Dates: start: 20141203
  5. METFORMIN HYDROCHLORIDE\SITAGLIPTIN PHOSPHATE [Concomitant]
     Active Substance: METFORMIN HYDROCHLORIDE\SITAGLIPTIN PHOSPHATE
     Indication: Product used for unknown indication
     Dosage: UNK
     Route: 048
     Dates: start: 20100323
  6. PARACETAMOL CINFA [Concomitant]
     Indication: Spinal osteoarthritis
     Dosage: 1 G, 24 HOURS(QD)
     Route: 048
     Dates: start: 20211105
  7. VIRIREC [Concomitant]
     Indication: Organic erectile dysfunction
     Dosage: 300 UG, 7 DAYS (ONCE EVERY 1 WK)
     Route: 061
     Dates: start: 20170919
  8. TOBREX [Concomitant]
     Active Substance: TOBRAMYCIN
     Indication: Conjunctivitis
     Dosage: 3 MG/ML
     Dates: start: 20220615, end: 20220621
  9. COROPRES [CARVEDILOL] [Concomitant]
     Indication: Product used for unknown indication
     Dosage: UNK
     Route: 048
     Dates: start: 20061227
  10. TORSEMIDE [Concomitant]
     Active Substance: TORSEMIDE
     Indication: Cardiac failure congestive
     Dosage: UNK
     Route: 048
     Dates: start: 20220518
  11. ELIQUIS [Concomitant]
     Active Substance: APIXABAN
     Indication: Atrial fibrillation
     Dosage: 5 MG, ONCE EVERY 12HR
     Route: 048
     Dates: start: 20190802
  12. OMEPRAZOLE [Concomitant]
     Active Substance: OMEPRAZOLE
     Indication: Spinal osteoarthritis
     Dosage: UNK
     Route: 048
     Dates: start: 20170118
  13. DOXAZOSIN MESYLATE [Concomitant]
     Active Substance: DOXAZOSIN MESYLATE
     Indication: Essential hypertension
     Dosage: UNK
     Route: 048
     Dates: start: 20120331
  14. ALOPURINOL CINFA [Concomitant]
     Indication: Atrial fibrillation
     Dosage: UNK
     Route: 048
     Dates: start: 20170222
  15. SIMVASTATIN [Concomitant]
     Active Substance: SIMVASTATIN
     Indication: Atrial fibrillation
     Dosage: UNK
     Route: 048
     Dates: start: 20170221
  16. LYRICA [Concomitant]
     Active Substance: PREGABALIN
     Indication: Arthralgia
     Dosage: UNK
     Route: 048
     Dates: start: 20210825

REACTIONS (4)
  - Acidosis [Recovering/Resolving]
  - Anuria [Recovering/Resolving]
  - Hyperkalaemia [Recovering/Resolving]
  - Labelled drug-drug interaction medication error [Recovered/Resolved]

NARRATIVE: CASE EVENT DATE: 20220611
